FAERS Safety Report 6114352-8 (Version None)
Quarter: 2009Q1

REPORT INFORMATION
  Report Type: 
  Country: None (occurrence: None)
  Receive Date: 20090312
  Receipt Date: 20090105
  Transmission Date: 20090719
  Serious: No
  Sender: FDA-Public Use
  Company Number: BS-ABBOTT-09P-010-0495837-00

PATIENT
  Age: 16 Year
  Sex: Male

DRUGS (1)
  1. DEPAKOTE [Suspect]
     Indication: GRAND MAL CONVULSION

REACTIONS (1)
  - DRUG INEFFECTIVE [None]
